FAERS Safety Report 8268789-1 (Version None)
Quarter: 2012Q2

REPORT INFORMATION
  Report Type: 
  Country: None (occurrence: None)
  Receive Date: 20120409
  Receipt Date: 20120409
  Transmission Date: 20120825
  Serious: Yes (Death)
  Sender: FDA-Public Use
  Company Number: None

PATIENT
  Sex: Male
  Weight: 79.378 kg

DRUGS (1)
  1. ESCITALOPRAM [Suspect]
     Indication: DEPRESSION
     Dates: start: 20120314, end: 20120320

REACTIONS (5)
  - PRODUCT SUBSTITUTION ISSUE [None]
  - INTENTIONAL SELF-INJURY [None]
  - ABNORMAL BEHAVIOUR [None]
  - PARTNER STRESS [None]
  - GUN SHOT WOUND [None]
